FAERS Safety Report 16358658 (Version 1)
Quarter: 2019Q2

REPORT INFORMATION
  Report Type: Spontaneous
  Country: ES (occurrence: ES)
  Receive Date: 20190527
  Receipt Date: 20190527
  Transmission Date: 20190711
  Serious: Yes (Hospitalization, Other)
  Sender: FDA-Public Use
  Company Number: ES-SA-2019SA143415

PATIENT
  Age: 39 Year
  Sex: Female

DRUGS (6)
  1. NOVORAPID 100 U/ML SOLUCION INYECTABLE EN VIAL, 1 VIAL DE 10 ML [Concomitant]
     Indication: DIABETES MELLITUS
     Route: 058
     Dates: start: 2005
  2. ALEMTUZUMAB [Suspect]
     Active Substance: ALEMTUZUMAB
     Indication: MULTIPLE SCLEROSIS
     Dosage: 12 MG
     Route: 042
     Dates: start: 20161210, end: 20181212
  3. LANTUS 100 UNIDADES/ML SOLUCION INYECTABLE EN UN CARTUCHO, 5 CARTUCHOS [Concomitant]
     Indication: DIABETES MELLITUS
     Route: 058
     Dates: start: 2005
  4. OMEPRAZOL (2141A) [Concomitant]
     Active Substance: OMEPRAZOLE
     Indication: PROPHYLAXIS AGAINST GASTROINTESTINAL ULCER
     Route: 048
     Dates: start: 201312
  5. POLARAMINE 2 MG COMPRIMIDOS 20 COMPRIMIDOS [Concomitant]
     Indication: NAUSEA
     Route: 048
     Dates: start: 201812
  6. EUTIROX  75 MICROGRAMOS COMPRIMIDOS, 100 COMPRIMIDOS [Concomitant]
     Indication: HYPOTHYROIDISM
     Route: 048
     Dates: start: 201811, end: 20190204

REACTIONS (1)
  - Haemolytic anaemia [Recovered/Resolved]

NARRATIVE: CASE EVENT DATE: 201901
